FAERS Safety Report 6609824-3 (Version None)
Quarter: 2010Q1

REPORT INFORMATION
  Report Type: 
  Country: None (occurrence: None)
  Receive Date: 20100302
  Receipt Date: 20100218
  Transmission Date: 20100710
  Serious: Yes (Other)
  Sender: FDA-Public Use
  Company Number: PHHY2009GB51067

PATIENT
  Sex: Female

DRUGS (3)
  1. CLOZARIL [Suspect]
     Indication: SCHIZOPHRENIA
     Dosage: 250 MG, DAILY
     Dates: start: 20091105
  2. CLOZARIL [Suspect]
     Indication: PSYCHOTIC DISORDER
  3. FLUOXETINE [Concomitant]
     Indication: DEPRESSION
     Dosage: 40 MG, DAILY
     Route: 048

REACTIONS (3)
  - HEADACHE [None]
  - HYPERTENSION [None]
  - VISION BLURRED [None]
